FAERS Safety Report 5515060-4 (Version None)
Quarter: 2007Q4

REPORT INFORMATION
  Report Type: 
  Country: None (occurrence: None)
  Receive Date: 20071113
  Receipt Date: 20070730
  Transmission Date: 20080405
  Serious: No
  Sender: FDA-Public Use
  Company Number: A0630775A

PATIENT
  Age: 64 Year
  Sex: Female

DRUGS (9)
  1. COREG [Suspect]
     Indication: HYPERTENSION
     Dosage: 25MG TWICE PER DAY
     Route: 048
  2. COREG CR [Suspect]
     Indication: HYPERTENSION
     Dosage: 80MG PER DAY
     Dates: start: 20070401
  3. AVAPRO [Suspect]
     Indication: HYPERTENSION
     Dosage: 300MG PER DAY
     Dates: start: 20060301
  4. HYDROCHLOROTHIAZIDE [Concomitant]
  5. DEMADEX [Concomitant]
  6. PEPCID AC [Concomitant]
  7. POLICOSANOL [Concomitant]
  8. POTASSIUM CHLORIDE [Concomitant]
  9. NIACIN [Concomitant]

REACTIONS (12)
  - ADVERSE EVENT [None]
  - BLOOD PRESSURE INCREASED [None]
  - DIZZINESS [None]
  - DRUG INEFFECTIVE [None]
  - DRY EYE [None]
  - DYSPNOEA [None]
  - FATIGUE [None]
  - HYPOTENSION [None]
  - OVERDOSE [None]
  - PRESYNCOPE [None]
  - RESPIRATORY SIGHS [None]
  - UNDERDOSE [None]
